FAERS Safety Report 16274200 (Version 1)
Quarter: 2019Q2

REPORT INFORMATION
  Report Type: Spontaneous
  Country: FI (occurrence: FI)
  Receive Date: 20190506
  Receipt Date: 20190506
  Transmission Date: 20190711
  Serious: Yes (Death)
  Sender: FDA-Public Use
  Company Number: FI-B.I. PHARMACEUTICALS,INC./RIDGEFIELD-2019-12-001425

PATIENT
  Age: 70 Year
  Sex: Female

DRUGS (4)
  1. ATORVASTATIN KRKA [Concomitant]
     Active Substance: ATORVASTATIN
     Indication: PRODUCT USED FOR UNKNOWN INDICATION
     Route: 065
  2. EMCONCOR CHF [Concomitant]
     Active Substance: BISOPROLOL FUMARATE
     Indication: PRODUCT USED FOR UNKNOWN INDICATION
     Route: 065
  3. DIOVAN [Concomitant]
     Active Substance: VALSARTAN
     Indication: PRODUCT USED FOR UNKNOWN INDICATION
     Route: 065
  4. PRADAXA [Suspect]
     Active Substance: DABIGATRAN ETEXILATE MESYLATE
     Indication: ATRIAL FIBRILLATION
     Dosage: 300,MG,DAILY
     Route: 048
     Dates: start: 20190225, end: 20190410

REACTIONS (8)
  - Hemiparesis [Fatal]
  - Cerebrospinal fluid circulation disorder [Fatal]
  - Brain oedema [Fatal]
  - Cerebral artery embolism [Fatal]
  - Dysarthria [Fatal]
  - Cerebral infarction [Fatal]
  - Brain herniation [Fatal]
  - Seizure [Fatal]

NARRATIVE: CASE EVENT DATE: 20190410
